FAERS Safety Report 6343002-0 (Version None)
Quarter: 2009Q3

REPORT INFORMATION
  Report Type: 
  Country: None (occurrence: None)
  Receive Date: 20090908
  Receipt Date: 20090901
  Transmission Date: 20100115
  Serious: Yes (Other)
  Sender: FDA-Public Use
  Company Number: US-AMGEN-QUU362626

PATIENT
  Sex: Male

DRUGS (20)
  1. EPOGEN [Suspect]
     Indication: RENAL FAILURE CHRONIC
     Dates: start: 20080914
  2. ARANESP [Suspect]
     Indication: RENAL FAILURE CHRONIC
     Dates: start: 20080805
  3. ADVAIR HFA [Concomitant]
  4. ALLOPURINOL [Concomitant]
  5. ASPIRIN [Concomitant]
  6. AVODART [Concomitant]
  7. CRESTOR [Concomitant]
  8. LACTULOSE [Concomitant]
  9. FLOMAX [Concomitant]
  10. HECTORAL [Concomitant]
  11. LACTULOSE [Concomitant]
  12. MIRALAX [Concomitant]
  13. NEXIUM [Concomitant]
  14. LOVAZA [Concomitant]
  15. PENTOXIFYLLINE [Concomitant]
  16. PLAVIX [Concomitant]
  17. VITAMINS, OTHER COMBINATIONS [Concomitant]
  18. RENAGEL [Concomitant]
  19. SINGULAIR [Concomitant]
  20. SPIRIVA [Concomitant]

REACTIONS (2)
  - AMYLOIDOSIS [None]
  - THERAPEUTIC RESPONSE DECREASED [None]
